FAERS Safety Report 24983715 (Version 1)
Quarter: 2025Q1

REPORT INFORMATION
  Report Type: Spontaneous
  Country: US (occurrence: US)
  Receive Date: 20250219
  Receipt Date: 20250219
  Transmission Date: 20250409
  Serious: No
  Sender: VIIV
  Company Number: US-VIIV HEALTHCARE-US2025017537

PATIENT
  Age: 59 Year
  Sex: Male

DRUGS (1)
  1. DOVATO [Suspect]
     Active Substance: DOLUTEGRAVIR SODIUM\LAMIVUDINE
     Indication: Product used for unknown indication

REACTIONS (5)
  - Vomiting [Unknown]
  - Dizziness [Unknown]
  - Feeding disorder [Unknown]
  - Balance disorder [Unknown]
  - Sleep deficit [Unknown]

NARRATIVE: CASE EVENT DATE: 20250207
